FAERS Safety Report 5792047-8 (Version None)
Quarter: 2008Q2

REPORT INFORMATION
  Report Type: 
  Country: None (occurrence: None)
  Receive Date: 20080625
  Receipt Date: 20080325
  Transmission Date: 20081010
  Serious: No
  Sender: FDA-Public Use
  Company Number: US-WYE-H02290408

PATIENT
  Age: 58 Year
  Sex: Male
  Weight: 72.64 kg

DRUGS (4)
  1. TORISEL [Suspect]
     Indication: RENAL CELL CARCINOMA
     Dosage: 25 MG 1X PER 1 WK, INTRAVENOUS
     Route: 042
     Dates: start: 20071102, end: 20080109
  2. ATENOLOL [Concomitant]
  3. FUROSEMIDE [Concomitant]
  4. K-PHOS (POTASSIUM PHOSPHATE MONOBASIC) [Concomitant]

REACTIONS (1)
  - CONFUSIONAL STATE [None]
